FAERS Safety Report 20207718 (Version 3)
Quarter: 2022Q1

REPORT INFORMATION
  Report Type: Report from Study
  Country: DE (occurrence: DE)
  Receive Date: 20211220
  Receipt Date: 20220129
  Transmission Date: 20220423
  Serious: Yes (Other)
  Sender: FDA-Public Use
  Company Number: DE-AMGEN INC.-DEUNI2021197462

PATIENT
  Age: 58 Year
  Sex: Male

DRUGS (5)
  1. AMG-510 [Suspect]
     Active Substance: AMG-510
     Indication: Non-small cell lung cancer
     Dosage: 960 MILLIGRAM, QD
     Route: 048
     Dates: start: 20211119
  2. AMG-510 [Suspect]
     Active Substance: AMG-510
     Dosage: UNK
     Route: 048
     Dates: start: 20211216
  3. MORPHINE [Concomitant]
     Active Substance: MORPHINE
     Dosage: 10 GRAM
     Dates: start: 20211119
  4. METAMIZOL [Concomitant]
     Active Substance: METAMIZOLE SODIUM
     Dosage: 500 GRAM
  5. LEVETIRACETAM [Concomitant]
     Active Substance: LEVETIRACETAM
     Dosage: 500 GRAM
     Dates: start: 20211028

REACTIONS (3)
  - Lymphangiosis carcinomatosa [Not Recovered/Not Resolved]
  - Metastases to pleura [Not Recovered/Not Resolved]
  - Hypertension [Not Recovered/Not Resolved]

NARRATIVE: CASE EVENT DATE: 20211203
